FAERS Safety Report 7693516-6 (Version None)
Quarter: 2011Q3

REPORT INFORMATION
  Report Type: 
  Country: None (occurrence: None)
  Receive Date: 20110819
  Receipt Date: 20110819
  Transmission Date: 20111222
  Serious: Yes (Hospitalization)
  Sender: FDA-Public Use
  Company Number: None

PATIENT
  Age: 73 Year
  Sex: Female
  Weight: 65.77 kg

DRUGS (1)
  1. RECLAST [Suspect]
     Indication: OSTEOPOROSIS
     Dosage: NOT KNOWN
     Dates: start: 20110616, end: 20110616

REACTIONS (8)
  - DIVERTICULITIS [None]
  - ECONOMIC PROBLEM [None]
  - HYPERHIDROSIS [None]
  - ABASIA [None]
  - PELVIC ABSCESS [None]
  - ABDOMINAL PAIN [None]
  - BODY TEMPERATURE INCREASED [None]
  - ASTHENIA [None]
